FAERS Safety Report 8095002-0 (Version None)
Quarter: 2012Q1

REPORT INFORMATION
  Report Type: 
  Country: None (occurrence: None)
  Receive Date: 20120131
  Receipt Date: 20120131
  Transmission Date: 20120608
  Serious: Yes (Other)
  Sender: FDA-Public Use
  Company Number: None

PATIENT
  Age: 37 Year
  Sex: Male
  Weight: 77.11 kg

DRUGS (1)
  1. CYMBALTA [Suspect]
     Indication: ANXIETY DISORDER
     Dosage: 60 MG.
     Route: 048
     Dates: start: 20110505, end: 20111102

REACTIONS (11)
  - BIPOLAR I DISORDER [None]
  - DECREASED APPETITE [None]
  - CRYING [None]
  - PARAESTHESIA [None]
  - AGGRESSION [None]
  - BLISTER [None]
  - MANIA [None]
  - AGORAPHOBIA [None]
  - EMOTIONAL DISORDER [None]
  - PERONEAL NERVE PALSY [None]
  - INSOMNIA [None]
